FAERS Safety Report 24982881 (Version 2)
Quarter: 2025Q3

REPORT INFORMATION
  Report Type: Spontaneous
  Country: US (occurrence: US)
  Receive Date: 20250218
  Receipt Date: 20250729
  Transmission Date: 20251020
  Serious: Yes (Other)
  Sender: PFIZER
  Company Number: US-PFIZER INC-202500035930

PATIENT
  Age: 68 Year
  Sex: Female

DRUGS (11)
  1. XELJANZ [Suspect]
     Active Substance: TOFACITINIB CITRATE
     Indication: Arthritis
     Dosage: 5 MG, 2X/DAY
     Dates: start: 2021
  2. XELJANZ [Suspect]
     Active Substance: TOFACITINIB CITRATE
     Dosage: 5 MG 1 TABLET  TWICE A DAY
     Dates: start: 20210609
  3. XELJANZ [Suspect]
     Active Substance: TOFACITINIB CITRATE
     Dosage: 5 MG, 1X/DAY
     Dates: start: 202408
  4. CLARITIN [Concomitant]
     Active Substance: LORATADINE
  5. MOMETASONE FUROATE [Concomitant]
     Active Substance: MOMETASONE FUROATE
  6. PRILOSEC [Concomitant]
     Active Substance: OMEPRAZOLE MAGNESIUM
  7. LORATADINE [Concomitant]
     Active Substance: LORATADINE
  8. PROAIR HFA [Concomitant]
     Active Substance: ALBUTEROL SULFATE
  9. TOZINAMERAN [Concomitant]
     Active Substance: TOZINAMERAN
  10. IBUPROFEN [Concomitant]
     Active Substance: IBUPROFEN
  11. FLUAD QUADRIVALENT NOS [Concomitant]
     Active Substance: INFLUENZA A VIRUS A/HONG KONG/2671/2019 IVR-208 (H3N2) ANTIGEN (FORMALDEHYDE INACTIVATED)\INFLUENZA

REACTIONS (7)
  - Hemiparesis [Not Recovered/Not Resolved]
  - Headache [Recovered/Resolved]
  - Migraine [Recovered/Resolved]
  - Nausea [Recovering/Resolving]
  - COVID-19 [Unknown]
  - White blood cell count increased [Not Recovered/Not Resolved]
  - Laboratory test abnormal [Recovering/Resolving]

NARRATIVE: CASE EVENT DATE: 20240101
